FAERS Safety Report 9026221 (Version 1)
Quarter: 2013Q1

REPORT INFORMATION
  Report Type: Spontaneous
  Country: US (occurrence: None)
  Receive Date: 20130108
  Receipt Date: 20130108
  Transmission Date: 20140127
  Serious: Yes (Death)
  Sender: FDA-Public Use
  Company Number: DSA_61677_2013

PATIENT
  Sex: Female

DRUGS (12)
  1. XENAZINE [Suspect]
     Dosage: 25 MG EVERY MORNING, 12.5 MG IN THE AFTERNOON, AND 12.5 MG IN THE EVENING ORAL
  2. ALPRAZOLAM [Concomitant]
  3. ARIMIDEX [Concomitant]
  4. CLONAZEPAM [Concomitant]
  5. DETROL LA [Concomitant]
  6. ERYTHROCIN [Concomitant]
  7. HALOPERIDOL [Concomitant]
  8. LIPITOR [Concomitant]
  9. MAXALT-MLT [Concomitant]
  10. NEXIUM [Concomitant]
  11. NITROFURANTOIN [Concomitant]
  12. PAROXETINE [Concomitant]

REACTIONS (1)
  - Death [None]
